FAERS Safety Report 4514117-4 (Version None)
Quarter: 2004Q4

REPORT INFORMATION
  Report Type: 
  Country: None (occurrence: None)
  Receive Date: 20041124
  Receipt Date: 20041108
  Transmission Date: 20050328
  Serious: Yes (Hospitalization)
  Sender: FDA-Public Use
  Company Number: DSA_25374_2004

PATIENT
  Age: 59 Year
  Sex: Female

DRUGS (10)
  1. TEMESTA [Suspect]
     Indication: SCHIZOPHRENIA
     Dosage: DF Q DAY PO
     Route: 048
  2. MAGNESIOCARD [Suspect]
     Dosage: DF PO
     Route: 048
     Dates: start: 20040624, end: 20040906
  3. MOGADON [Suspect]
     Dosage: 5 MG Q DAY PO
     Route: 048
     Dates: start: 20040609, end: 20040715
  4. TEGRETOL [Suspect]
     Dosage: 800 MG Q DAY PO
     Route: 048
     Dates: start: 20040101
  5. ZYPREXA [Suspect]
     Dosage: 30 MG Q DAY PO
     Route: 048
     Dates: start: 20040615, end: 20040624
  6. ZYPREXA [Suspect]
     Dosage: 25 MG Q DAY PO
     Route: 048
     Dates: start: 20040625, end: 20040628
  7. ZYPREXA [Suspect]
     Dosage: 20 MG Q DAY PO
     Route: 048
     Dates: start: 20040629, end: 20040706
  8. ZYPREXA [Suspect]
     Dosage: 15 MG Q DAY PO
     Route: 048
     Dates: start: 20040805, end: 20040808
  9. ZYPREXA [Suspect]
     Dosage: 10 MG Q DAY PO
     Route: 048
     Dates: start: 20040809
  10. ELTROXIN [Concomitant]

REACTIONS (4)
  - AKATHISIA [None]
  - HYPERHIDROSIS [None]
  - OEDEMA [None]
  - WEIGHT INCREASED [None]
